FAERS Safety Report 8871949 (Version 1)
Quarter: 2012Q4

REPORT INFORMATION
  Report Type: 
  Country: US (occurrence: US)
  Receive Date: 20121023
  Receipt Date: 20121023
  Transmission Date: 20130627
  Serious: Yes (Hospitalization)
  Sender: FDA-Public Use
  Company Number: US-ASTELLAS-2012US005549

PATIENT
  Age: 38 None
  Sex: Male
  Weight: 118 kg

DRUGS (1)
  1. PROGRAF [Suspect]
     Indication: RENAL TRANSPLANT
     Dosage: 3 mg, bid
     Route: 048
     Dates: start: 20040715, end: 2010

REACTIONS (2)
  - Treatment noncompliance [Unknown]
  - Kidney transplant rejection [Not Recovered/Not Resolved]
